FAERS Safety Report 17009247 (Version 1)
Quarter: 2019Q4

REPORT INFORMATION
  Report Type: Spontaneous
  Country: US (occurrence: US)
  Receive Date: 20191108
  Receipt Date: 20191108
  Transmission Date: 20200122
  Serious: Yes (Hospitalization, Other)
  Sender: FDA-Public Use
  Company Number: US-MYLANLABS-2019M1105982

PATIENT
  Age: 65 Year
  Sex: Female

DRUGS (25)
  1. GLYCERYL TRINITRATE [Suspect]
     Active Substance: NITROGLYCERIN
     Indication: CHEST PAIN
     Dosage: UNK
     Route: 060
  2. MORPHINE [Concomitant]
     Active Substance: MORPHINE
     Route: 065
  3. PREDNISONE. [Suspect]
     Active Substance: PREDNISONE
     Indication: NON-SMALL CELL LUNG CANCER
     Dosage: INITIAL ROUTE AND DOSAGE NOT STATED
     Route: 048
  4. ALBUTEROL                          /00139501/ [Concomitant]
     Active Substance: ALBUTEROL
     Indication: NON-SMALL CELL LUNG CANCER
     Dosage: UNK
  5. ASPIRIN                            /00002701/ [Concomitant]
     Active Substance: ASPIRIN
     Dosage: UNK
     Route: 048
  6. HYDROMORPHONE [Concomitant]
     Active Substance: HYDROMORPHONE
     Dosage: UNK
     Route: 065
  7. BRIMONIDINE [Concomitant]
     Active Substance: BRIMONIDINE TARTRATE
     Route: 065
  8. CARBOPLATIN. [Concomitant]
     Active Substance: CARBOPLATIN
     Indication: NON-SMALL CELL LUNG CANCER
     Dosage: UNK
     Route: 065
  9. PEMETREXED. [Concomitant]
     Active Substance: PEMETREXED
     Indication: NON-SMALL CELL LUNG CANCER
     Dosage: UNK
     Route: 065
  10. IPRATROPIUM BROMIDE W/SALBUTAMOL [Concomitant]
     Active Substance: ALBUTEROL\IPRATROPIUM BROMIDE
     Dosage: UNK
     Route: 065
  11. TIOTROPIUM [Concomitant]
     Active Substance: TIOTROPIUM
     Indication: NON-SMALL CELL LUNG CANCER
     Route: 065
  12. SENNA                              /00142201/ [Concomitant]
     Active Substance: SENNA LEAF
     Dosage: UNK
     Route: 065
  13. OXYCODONE [Concomitant]
     Active Substance: OXYCODONE
     Dosage: UNK
     Route: 065
  14. LATANOPROST. [Concomitant]
     Active Substance: LATANOPROST
     Dosage: UNK
     Route: 065
  15. ACETAMINOPHEN. [Concomitant]
     Active Substance: ACETAMINOPHEN
     Indication: PAIN
     Dosage: AS NEEDED
     Route: 065
  16. METHYLPREDNISOLONE. [Suspect]
     Active Substance: METHYLPREDNISOLONE
     Indication: MYOCARDITIS
     Dosage: 1 MILLIGRAM/KILOGRAM
  17. METHYLPREDNISOLONE. [Suspect]
     Active Substance: METHYLPREDNISOLONE
     Dosage: 1000 MILLIGRAM, QD
     Route: 065
  18. FLUTICASONE PROPIONATE W/SALMETEROL [Concomitant]
     Active Substance: FLUTICASONE PROPIONATE\SALMETEROL XINAFOATE
     Dosage: UNK
     Route: 065
  19. NORMAL SALINE [Concomitant]
     Active Substance: SODIUM CHLORIDE
     Dosage: UNK
     Route: 065
  20. CHOLECALCIFEROL [Concomitant]
     Active Substance: CHOLECALCIFEROL
     Route: 065
  21. PREDNISONE. [Suspect]
     Active Substance: PREDNISONE
     Indication: MYOCARDITIS
  22. ERYTHROMYCIN. [Suspect]
     Active Substance: ERYTHROMYCIN
     Indication: PRODUCT USED FOR UNKNOWN INDICATION
     Dosage: UNK
     Route: 065
  23. DOCUSATE [Concomitant]
     Active Substance: DOCUSATE
     Dosage: UNK
     Route: 065
  24. OMEPRAZOLE. [Concomitant]
     Active Substance: OMEPRAZOLE
     Dosage: UNK
     Route: 065
  25. NIVOLUMAB [Concomitant]
     Active Substance: NIVOLUMAB
     Indication: NON-SMALL CELL LUNG CANCER
     Dosage: 3 MILLIGRAM/KILOGRAM
     Route: 065

REACTIONS (4)
  - Myocarditis [Unknown]
  - Rebound effect [Unknown]
  - Drug ineffective [Unknown]
  - Abdominal discomfort [Unknown]
